FAERS Safety Report 18364289 (Version 1)
Quarter: 2020Q4

REPORT INFORMATION
  Report Type: Report from Study
  Country: HK (occurrence: HK)
  Receive Date: 20201009
  Receipt Date: 20201009
  Transmission Date: 20210114
  Serious: No
  Sender: FDA-Public Use
  Company Number: HK-KARYOPHARM-2020KPT001207

PATIENT
  Age: 73 Year
  Sex: Male

DRUGS (3)
  1. SELINEXOR [Suspect]
     Active Substance: SELINEXOR
     Indication: PLASMA CELL MYELOMA
     Dosage: 80 MG, WEEKLY
     Route: 048
     Dates: start: 20200830, end: 20200913
  2. POMALIDOMIDE [Concomitant]
     Active Substance: POMALIDOMIDE
     Indication: PLASMA CELL MYELOMA
     Dosage: 2 MG, QD ON DAYS 1-21
     Route: 048
     Dates: start: 20200830, end: 20200913
  3. DEXAMETHASONE. [Concomitant]
     Active Substance: DEXAMETHASONE
     Indication: PLASMA CELL MYELOMA
     Dosage: 20 MG, WEEKLY
     Route: 048
     Dates: start: 20200830, end: 20200913

REACTIONS (2)
  - Platelet count decreased [Unknown]
  - Diarrhoea [Unknown]
